FAERS Safety Report 9425089 (Version 1)
Quarter: 2013Q3

REPORT INFORMATION
  Report Type: Spontaneous
  Country: US (occurrence: US)
  Receive Date: 20130729
  Receipt Date: 20130729
  Transmission Date: 20140515
  Serious: Yes (Death)
  Sender: FDA-Public Use
  Company Number: US-GLAXOSMITHKLINE-A1035090A

PATIENT
  Age: 54 Year
  Sex: Male

DRUGS (11)
  1. TYKERB [Suspect]
     Indication: BREAST CANCER
     Dosage: 1000U PER DAY
     Route: 048
     Dates: start: 20120307
  2. ASPIRIN [Concomitant]
  3. PRILOSEC [Concomitant]
  4. GLIPIZIDE [Concomitant]
  5. DEXAMETHASONE [Concomitant]
  6. ZOLOFT [Concomitant]
  7. MOBIC [Concomitant]
  8. LEVOXYL [Concomitant]
  9. NORVASC [Concomitant]
  10. METFORMIN [Concomitant]
  11. NORVIR [Concomitant]

REACTIONS (1)
  - Death [Fatal]
